FAERS Safety Report 26131737 (Version 1)
Quarter: 2025Q4

REPORT INFORMATION
  Report Type: Spontaneous
  Country: US (occurrence: None)
  Receive Date: 20251208
  Receipt Date: 20251208
  Transmission Date: 20260117
  Serious: Yes (Hospitalization)
  Sender: FDA-CTU
  Company Number: None

PATIENT
  Age: 65 Year
  Sex: Female

DRUGS (4)
  1. REBIF REBIDOSE [Suspect]
     Active Substance: INTERFERON BETA-1A
     Indication: Multiple sclerosis
     Dosage: INJECT 0.5 ML (44 MCG TOTAL) UNDER THE SKIN (SUBCUTANEOUS INJECTION) THREE TIMES PER WEEK
     Route: 058
     Dates: start: 20191221
  2. IBUPROFEN [Concomitant]
     Active Substance: IBUPROFEN
  3. PROBIOTIC CAP [Concomitant]
  4. REBIF REBIDO INJ 44/0.5 [Concomitant]

REACTIONS (2)
  - Diverticulitis [None]
  - Infection [None]

NARRATIVE: CASE EVENT DATE: 20251117
